FAERS Safety Report 23745191 (Version 1)
Quarter: 2024Q2

REPORT INFORMATION
  Report Type: Report from Study
  Country: US (occurrence: US)
  Receive Date: 20240416
  Receipt Date: 20240416
  Transmission Date: 20240716
  Serious: Yes (Hospitalization, Other)
  Sender: FDA-Public Use
  Company Number: US-ABBVIE-5632795

PATIENT
  Sex: Female

DRUGS (1)
  1. HUMIRA [Suspect]
     Active Substance: ADALIMUMAB
     Indication: Rheumatoid arthritis
     Route: 058
     Dates: start: 20230901

REACTIONS (4)
  - Ligament rupture [Recovering/Resolving]
  - Feeling of body temperature change [Not Recovered/Not Resolved]
  - Limb injury [Recovering/Resolving]
  - Pain in extremity [Recovering/Resolving]
